FAERS Safety Report 13012405 (Version 4)
Quarter: 2017Q1

REPORT INFORMATION
  Report Type: Report from Study
  Country: PL (occurrence: PL)
  Receive Date: 20161209
  Receipt Date: 20170208
  Transmission Date: 20170428
  Serious: Yes (Hospitalization, Disabling)
  Sender: FDA-Public Use
  Company Number: PL-TEVA-631971ISR

PATIENT
  Age: 72 Year
  Sex: Female

DRUGS (4)
  1. CISPLATIN. [Suspect]
     Active Substance: CISPLATIN
     Indication: CHEMOTHERAPY
     Dosage: 110 MILLIGRAM DAILY;
     Route: 042
     Dates: start: 20151102, end: 20151102
  2. ONDANSETRON [Suspect]
     Active Substance: ONDANSETRON
     Indication: PROPHYLAXIS OF NAUSEA AND VOMITING
     Dosage: 16 MILLIGRAM DAILY;
     Route: 042
     Dates: start: 20151102, end: 20151104
  3. LONQUEX [Suspect]
     Active Substance: LIPEGFILGRASTIM
     Indication: COLONY STIMULATING FACTOR PROPHYLAXIS
     Dosage: 6 MILLIGRAM DAILY;
     Route: 058
     Dates: start: 20151106, end: 20151106
  4. ETOPOSIDE. [Suspect]
     Active Substance: ETOPOSIDE
     Indication: CHEMOTHERAPY
     Dosage: 140 MILLIGRAM DAILY;
     Route: 042
     Dates: start: 20151102, end: 20151104

REACTIONS (5)
  - Performance status decreased [Unknown]
  - Malaise [Unknown]
  - C-reactive protein increased [Unknown]
  - Asthenia [Unknown]
  - Leukocytosis [Unknown]

NARRATIVE: CASE EVENT DATE: 20151115
